FAERS Safety Report 13127438 (Version 1)
Quarter: 2017Q1

REPORT INFORMATION
  Report Type: Report from Study
  Country: US (occurrence: US)
  Receive Date: 20170118
  Receipt Date: 20170118
  Transmission Date: 20170428
  Serious: Yes (Hospitalization)
  Sender: FDA-Public Use
  Company Number: US-ACTELION-A-NJ2017-148257

PATIENT
  Age: 75 Year
  Sex: Male

DRUGS (38)
  1. ALTEPLASE [Concomitant]
     Active Substance: ALTEPLASE
  2. CARVEDILOL. [Concomitant]
     Active Substance: CARVEDILOL
  3. GUAIFENESIN. [Concomitant]
     Active Substance: GUAIFENESIN
  4. POTASSIUM CHLORIDE. [Concomitant]
     Active Substance: POTASSIUM CHLORIDE
  5. PIPERACILLIN AND TAZOBACTAM [Suspect]
     Active Substance: PIPERACILLIN SODIUM\TAZOBACTAM SODIUM
     Indication: PRODUCT USED FOR UNKNOWN INDICATION
     Route: 065
  6. LEVOFLOXACIN. [Suspect]
     Active Substance: LEVOFLOXACIN
     Indication: PRODUCT USED FOR UNKNOWN INDICATION
     Route: 065
  7. FAMOTIDINE. [Concomitant]
     Active Substance: FAMOTIDINE
  8. FUROSEMIDE. [Concomitant]
     Active Substance: FUROSEMIDE
  9. IBUPROFEN. [Concomitant]
     Active Substance: IBUPROFEN
  10. MAGNESIUM SULFATE. [Concomitant]
     Active Substance: MAGNESIUM SULFATE
  11. AZITHROMYCIN ANHYDROUS. [Concomitant]
     Active Substance: AZITHROMYCIN ANHYDROUS
  12. HEPARIN [Concomitant]
     Active Substance: HEPARIN SODIUM
  13. ALBUTEROL. [Concomitant]
     Active Substance: ALBUTEROL
  14. ENOXAPARIN [Concomitant]
     Active Substance: ENOXAPARIN
  15. OXYBUTYNIN [Concomitant]
     Active Substance: OXYBUTYNIN
  16. ALBUTEROL W/IPRATROPIUM [Concomitant]
     Active Substance: ALBUTEROL\IPRATROPIUM
  17. CEFTRIAXONE. [Concomitant]
     Active Substance: CEFTRIAXONE
  18. WARFARIN [Concomitant]
     Active Substance: WARFARIN
  19. DICLOFENAC [Concomitant]
     Active Substance: DICLOFENAC
  20. RANITIDINE. [Concomitant]
     Active Substance: RANITIDINE
  21. VANCOMYCIN [Suspect]
     Active Substance: VANCOMYCIN
     Indication: PRODUCT USED FOR UNKNOWN INDICATION
     Route: 065
  22. INSULIN [Concomitant]
     Active Substance: INSULIN NOS
  23. RIOCIGUAT [Concomitant]
     Active Substance: RIOCIGUAT
  24. OPSUMIT [Suspect]
     Active Substance: MACITENTAN
     Indication: PULMONARY HYPERTENSION
     Dosage: UNK
     Route: 048
     Dates: start: 20160915, end: 20161215
  25. ACETAMINOPHEN. [Concomitant]
     Active Substance: ACETAMINOPHEN
  26. CELLULOSE [Concomitant]
     Active Substance: POWDERED CELLULOSE
  27. CALCIUM CHOLECALCIFEROL BERES [Concomitant]
  28. FERROUS SULFATE. [Concomitant]
     Active Substance: FERROUS SULFATE
  29. METFORMIN [Concomitant]
     Active Substance: METFORMIN HYDROCHLORIDE
  30. MAGNESIUM OXIDE. [Concomitant]
     Active Substance: MAGNESIUM OXIDE
  31. BENZONATATE. [Concomitant]
     Active Substance: BENZONATATE
  32. BUDESONIDE. [Concomitant]
     Active Substance: BUDESONIDE
  33. TIOTROPIUM BROMIDE [Concomitant]
     Active Substance: TIOTROPIUM BROMIDE
  34. DEXTROMETHORPHAN HBR + GUAIFENESIN [Concomitant]
     Active Substance: DEXTROMETHORPHAN HYDROBROMIDE\GUAIFENESIN
  35. METOPROLOL. [Concomitant]
     Active Substance: METOPROLOL
  36. SODIUM CHLORIDE. [Concomitant]
     Active Substance: SODIUM CHLORIDE
  37. ATORVASTATIN [Concomitant]
     Active Substance: ATORVASTATIN
  38. NIACIN. [Concomitant]
     Active Substance: NIACIN

REACTIONS (8)
  - Oxygen supplementation [Recovered/Resolved]
  - Pneumonia [Unknown]
  - Pulmonary oedema [Recovered/Resolved]
  - Upper respiratory tract infection [Unknown]
  - Pulmonary hypertension [Recovered/Resolved]
  - Aspartate aminotransferase increased [Unknown]
  - Respiratory failure [Unknown]
  - Dyspnoea [Recovered/Resolved]

NARRATIVE: CASE EVENT DATE: 20161201
